FAERS Safety Report 7463024-6 (Version None)
Quarter: 2011Q2

REPORT INFORMATION
  Report Type: 
  Country: None (occurrence: None)
  Receive Date: 20110506
  Receipt Date: 20110426
  Transmission Date: 20111010
  Serious: Yes (Death, Other)
  Sender: FDA-Public Use
  Company Number: US-CELGENEUS-163-21660-11043524

PATIENT

DRUGS (2)
  1. ABRAXANE [Suspect]
     Dosage: 260 MICROGRAM/SQ. METER
     Route: 051
  2. AVASTIN [Suspect]
     Dosage: 15 MILLIGRAM/KILOGRAM
     Route: 051

REACTIONS (12)
  - DEATH [None]
  - VENOUS THROMBOSIS [None]
  - PROTEINURIA [None]
  - HYPERTENSION [None]
  - PERIPHERAL SENSORY NEUROPATHY [None]
  - HAEMORRHAGE [None]
  - NEUTROPENIA [None]
  - FEBRILE NEUTROPENIA [None]
  - GASTROINTESTINAL PERFORATION [None]
  - LEFT VENTRICULAR DYSFUNCTION [None]
  - ARTERIAL THROMBOSIS [None]
  - DISEASE PROGRESSION [None]
